FAERS Safety Report 6605195-7 (Version None)
Quarter: 2010Q1

REPORT INFORMATION
  Report Type: 
  Country: None (occurrence: None)
  Receive Date: 20100226
  Receipt Date: 20100218
  Transmission Date: 20100710
  Serious: Yes (Death, Hospitalization)
  Sender: FDA-Public Use
  Company Number: US-WATSON-2010-01940

PATIENT
  Sex: Male

DRUGS (2)
  1. FENTANYL-50 [Suspect]
     Indication: PAIN
     Dosage: UNK
     Route: 062
     Dates: start: 20090115
  2. DURAGESIC-100 [Suspect]
     Indication: PAIN
     Dosage: UNK
     Dates: start: 20090116

REACTIONS (14)
  - BRAIN DEATH [None]
  - BRAIN INJURY [None]
  - COMA [None]
  - CORNEAL REFLEX DECREASED [None]
  - DIZZINESS [None]
  - HEADACHE [None]
  - HEART RATE DECREASED [None]
  - HYPOTENSION [None]
  - LOSS OF CONSCIOUSNESS [None]
  - NAUSEA [None]
  - OVERDOSE [None]
  - PULSE ABSENT [None]
  - RESPIRATORY FAILURE [None]
  - UNRESPONSIVE TO STIMULI [None]
